FAERS Safety Report 18292577 (Version 3)
Quarter: 2021Q2

REPORT INFORMATION
  Report Type: Spontaneous
  Country: CA (occurrence: CA)
  Receive Date: 20200922
  Receipt Date: 20210412
  Transmission Date: 20210717
  Serious: Yes (Other)
  Sender: FDA-Public Use
  Company Number: CA-ALVOGEN-2020-ALVOGEN-114378

PATIENT
  Age: 79 Year
  Sex: Male

DRUGS (2)
  1. ATENOLOL. [Suspect]
     Active Substance: ATENOLOL
     Indication: HYPERTENSION
     Route: 048
  2. OCTREOTIDE ACETATE. [Suspect]
     Active Substance: OCTREOTIDE ACETATE
     Indication: ACROMEGALY
     Route: 030

REACTIONS (18)
  - Nephrolithiasis [Unknown]
  - Peripheral swelling [Recovered/Resolved]
  - Peripheral coldness [Unknown]
  - Heart rate decreased [Unknown]
  - Blood growth hormone decreased [Unknown]
  - Blood pressure systolic increased [Unknown]
  - Dementia Alzheimer^s type [Recovered/Resolved]
  - Rectal haemorrhage [Recovered/Resolved]
  - Vision blurred [Unknown]
  - Chills [Unknown]
  - Weight decreased [Unknown]
  - Constipation [Recovered/Resolved]
  - Frequent bowel movements [Unknown]
  - Body temperature fluctuation [Unknown]
  - Pulse abnormal [Unknown]
  - Epistaxis [Unknown]
  - Haemorrhoids [Recovered/Resolved]
  - Bradycardia [Recovered/Resolved]

NARRATIVE: CASE EVENT DATE: 201802
